FAERS Safety Report 8444167-7 (Version None)
Quarter: 2012Q2

REPORT INFORMATION
  Report Type: 
  Country: None (occurrence: None)
  Receive Date: 20120323
  Receipt Date: 20110801
  Transmission Date: 20120825
  Serious: Yes (Hospitalization)
  Sender: FDA-Public Use
  Company Number: 163-21880-11052806

PATIENT
  Age: 73 Year
  Sex: Male
  Weight: 73.9363 kg

DRUGS (6)
  1. REVLIMID [Suspect]
     Indication: WALDENSTROM'S MACROGLOBULINAEMIA
     Dosage: 25 MG, DAYS 1-21 EVERY 28 DAYS, PO; 10 MG, 1 IN 1 D, PO
     Route: 048
     Dates: start: 20110501
  2. REVLIMID [Suspect]
     Indication: WALDENSTROM'S MACROGLOBULINAEMIA
     Dosage: 25 MG, DAYS 1-21 EVERY 28 DAYS, PO; 10 MG, 1 IN 1 D, PO
     Route: 048
     Dates: start: 20110418, end: 20110503
  3. ASPIRIN [Concomitant]
  4. MEGACE [Concomitant]
  5. DECADRON [Concomitant]
  6. TRIAMTERENE/HCTZ (DYAZIDE) [Concomitant]

REACTIONS (1)
  - HAEMOGLOBIN DECREASED [None]
